FAERS Safety Report 4806316-9 (Version None)
Quarter: 2005Q4

REPORT INFORMATION
  Report Type: 
  Country: None (occurrence: None)
  Receive Date: 20051021
  Receipt Date: 20041102
  Transmission Date: 20060501
  Serious: Yes (Hospitalization)
  Sender: FDA-Public Use
  Company Number: US-MERCK-0411USA00476

PATIENT
  Age: 62 Year
  Sex: Female

DRUGS (31)
  1. VIOXX [Suspect]
     Route: 048
  2. PLAVIX [Concomitant]
     Route: 065
  3. PLAVIX [Concomitant]
     Route: 065
  4. PROTONIX [Concomitant]
     Route: 065
  5. PROTONIX [Concomitant]
     Route: 065
  6. PROTONIX [Concomitant]
     Route: 065
  7. IMDUR [Concomitant]
     Route: 065
  8. IMDUR [Concomitant]
     Route: 065
  9. ZOCOR [Concomitant]
     Route: 065
  10. ZOCOR [Concomitant]
     Route: 065
  11. ACCUPRIL [Concomitant]
     Route: 065
  12. ACCUPRIL [Concomitant]
     Route: 065
  13. GLYBURIDE [Concomitant]
     Route: 065
  14. ASPIRIN [Concomitant]
     Route: 065
  15. ALBUTEROL [Concomitant]
     Route: 055
  16. ALBUTEROL [Concomitant]
     Route: 055
  17. ATROVENT [Concomitant]
     Route: 055
  18. ATROVENT [Concomitant]
     Route: 055
  19. TOPROL-XL [Concomitant]
     Route: 065
  20. AVANDIA [Concomitant]
     Route: 065
  21. AVANDIA [Concomitant]
     Route: 065
  22. ASPIRIN [Concomitant]
     Route: 065
  23. ASPIRIN [Concomitant]
     Route: 065
  24. LIPITOR [Concomitant]
     Route: 065
  25. LIPITOR [Concomitant]
     Route: 065
  26. CALCIUM (UNSPECIFIED) [Concomitant]
     Route: 065
  27. PRILOSEC [Concomitant]
     Route: 065
  28. PRILOSEC [Concomitant]
     Route: 065
  29. COMBIVENT [Concomitant]
     Route: 055
  30. CARVEDILOL [Concomitant]
     Route: 048
  31. CARVEDILOL [Concomitant]
     Route: 048

REACTIONS (4)
  - CHEST PAIN [None]
  - MYOCARDIAL INFARCTION [None]
  - NASOPHARYNGITIS [None]
  - SENSATION OF HEAVINESS [None]
